FAERS Safety Report 5887972-3 (Version None)
Quarter: 2008Q3

REPORT INFORMATION
  Report Type: 
  Country: None (occurrence: None)
  Receive Date: 20080918
  Receipt Date: 20080910
  Transmission Date: 20090109
  Serious: Yes (Death)
  Sender: FDA-Public Use
  Company Number: B0537283A

PATIENT
  Age: 50 Year
  Sex: Female

DRUGS (1)
  1. TYVERB [Suspect]
     Route: 048
     Dates: end: 20071003

REACTIONS (1)
  - GENERAL PHYSICAL HEALTH DETERIORATION [None]
